FAERS Safety Report 21659075 (Version 1)
Quarter: 2022Q4

REPORT INFORMATION
  Report Type: Spontaneous
  Country: US (occurrence: None)
  Receive Date: 20221128
  Receipt Date: 20221128
  Transmission Date: 20230113
  Serious: No
  Sender: FDA-Public Use
  Company Number: None

PATIENT
  Age: 52 Year
  Sex: Male

DRUGS (9)
  1. TEMOZOLOMIDE [Suspect]
     Active Substance: TEMOZOLOMIDE
     Indication: Brain neoplasm malignant
     Route: 048
  2. TEMOZOLOMIDE [Suspect]
     Active Substance: TEMOZOLOMIDE
     Indication: Brain neoplasm malignant
  3. BACTRIM DS [Concomitant]
  4. CELEBREX [Concomitant]
  5. CYCLOBENZAPRINE [Concomitant]
  6. GLEOSTINE [Concomitant]
  7. KEPPRA [Concomitant]
  8. LOSARTAN [Concomitant]
  9. ONDANSETRON [Concomitant]

REACTIONS (1)
  - Disease progression [None]
